FAERS Safety Report 8272799-8 (Version None)
Quarter: 2012Q2

REPORT INFORMATION
  Report Type: 
  Country: None (occurrence: None)
  Receive Date: 20120411
  Receipt Date: 20120403
  Transmission Date: 20120825
  Serious: Yes (Death, Hospitalization)
  Sender: FDA-Public Use
  Company Number: US-BIOGENIDEC-2012BI011687

PATIENT
  Sex: Female

DRUGS (2)
  1. BACLOFEN [Concomitant]
     Indication: MUSCLE SPASMS
  2. AVONEX [Suspect]
     Indication: MULTIPLE SCLEROSIS
     Route: 030
     Dates: start: 20090101

REACTIONS (11)
  - PNEUMONIA [None]
  - MULTIPLE SCLEROSIS [None]
  - ABNORMAL BEHAVIOUR [None]
  - MYOCARDIAL INFARCTION [None]
  - COMMUNICATION DISORDER [None]
  - DYSPHAGIA [None]
  - EXTREMITY CONTRACTURE [None]
  - HYPOTENSION [None]
  - PULMONARY THROMBOSIS [None]
  - PAIN [None]
  - ABASIA [None]
